FAERS Safety Report 5412187-2 (Version None)
Quarter: 2007Q3

REPORT INFORMATION
  Report Type: 
  Country: None (occurrence: None)
  Receive Date: 20070809
  Receipt Date: 20070731
  Transmission Date: 20080115
  Serious: Yes (Other)
  Sender: FDA-Public Use
  Company Number: 163-20785-07071688

PATIENT
  Age: 30 Year
  Sex: Female

DRUGS (1)
  1. THALOMID [Suspect]
     Indication: ENDOMETRIOSIS
     Dosage: TAPERED UP TO 250 MG, DAILY, ORAL
     Route: 048
     Dates: start: 20070419, end: 20070726

REACTIONS (3)
  - SPEECH DISORDER [None]
  - TREMOR [None]
  - URINARY INCONTINENCE [None]
